FAERS Safety Report 6163763-3 (Version None)
Quarter: 2009Q2

REPORT INFORMATION
  Report Type: 
  Country: None (occurrence: None)
  Receive Date: 20090422
  Receipt Date: 20090414
  Transmission Date: 20091009
  Serious: Yes (Other)
  Sender: FDA-Public Use
  Company Number: AU-JNJFOC-20090402246

PATIENT
  Age: 21 Year
  Sex: Male
  Weight: 76 kg

DRUGS (4)
  1. RISPERDAL CONSTA [Suspect]
     Indication: SCHIZOPHRENIA
     Route: 030
  2. RISPERDAL [Suspect]
     Indication: SCHIZOPHRENIA
     Route: 048
  3. ESIPRAM [Concomitant]
     Route: 065
  4. TEMAZEPAM [Concomitant]
     Route: 065

REACTIONS (2)
  - PAINFUL ERECTION [None]
  - PENILE SWELLING [None]
